FAERS Safety Report 4768833-X (Version None)
Quarter: 2005Q3

REPORT INFORMATION
  Report Type: 
  Country: None (occurrence: None)
  Receive Date: 20050914
  Receipt Date: 20050829
  Transmission Date: 20060218
  Serious: Yes (Hospitalization)
  Sender: FDA-Public Use
  Company Number: 2005-131980-NL

PATIENT
  Age: 41 Year
  Sex: Female

DRUGS (1)
  1. NUVARING [Suspect]
     Indication: CONTRACEPTION
     Dosage: VAGINAL
     Route: 067
     Dates: start: 20050101

REACTIONS (5)
  - FEELING HOT AND COLD [None]
  - FEELING JITTERY [None]
  - HYPONATRAEMIA [None]
  - INCOHERENT [None]
  - POLLAKIURIA [None]
